FAERS Safety Report 6030915-2 (Version None)
Quarter: 2009Q1

REPORT INFORMATION
  Report Type: 
  Country: None (occurrence: None)
  Receive Date: 20090106
  Receipt Date: 20081222
  Transmission Date: 20090719
  Serious: Yes (Other)
  Sender: FDA-Public Use
  Company Number: 2008EK000218

PATIENT
  Age: 61 Year
  Sex: Male

DRUGS (4)
  1. CARDENE [Suspect]
     Indication: HYPERTENSION
     Dosage: ; IV
     Route: 042
  2. MANNITOL [Concomitant]
  3. METOPROLOL TARTRATE [Concomitant]
  4. HEPARIN [Concomitant]

REACTIONS (1)
  - HEPATITIS ACUTE [None]
